FAERS Safety Report 16984044 (Version 2)
Quarter: 2019Q4

REPORT INFORMATION
  Report Type: Spontaneous
  Country: FR (occurrence: FR)
  Receive Date: 20191101
  Receipt Date: 20191120
  Transmission Date: 20200122
  Serious: Yes (Hospitalization)
  Sender: FDA-Public Use
  Company Number: FR-JNJFOC-20191037143

PATIENT
  Age: 18 Year
  Sex: Female
  Weight: 64 kg

DRUGS (2)
  1. TRICILEST [Suspect]
     Active Substance: ETHINYL ESTRADIOL\NORGESTIMATE
     Indication: ORAL CONTRACEPTION
     Route: 048
     Dates: start: 201809, end: 20191001
  2. ISOTRETINOIN. [Concomitant]
     Active Substance: ISOTRETINOIN
     Route: 048
     Dates: start: 201712, end: 201810

REACTIONS (1)
  - Ischaemic stroke [Recovering/Resolving]

NARRATIVE: CASE EVENT DATE: 20190930
